FAERS Safety Report 9734120 (Version 2)
Quarter: 2013Q4

REPORT INFORMATION
  Report Type: Other
  Country: US (occurrence: US)
  Receive Date: 20131205
  Receipt Date: 20131216
  Transmission Date: 20140711
  Serious: Yes (Hospitalization, Other)
  Sender: FDA-Public Use
  Company Number: US-RB-061157-13

PATIENT
  Age: 20 Month
  Sex: Male

DRUGS (1)
  1. SUBOXONE FILM [Suspect]
     Indication: ACCIDENTAL EXPOSURE TO PRODUCT BY CHILD
     Dosage: SUBOXONE FILM; THE INFANT INGESTED HALF OF A SUBOXONE FILM
     Route: 065

REACTIONS (11)
  - Oxygen saturation decreased [Recovered/Resolved]
  - Accidental exposure to product by child [Recovered/Resolved]
  - Toxicity to various agents [Recovered/Resolved]
  - Somnolence [Recovered/Resolved]
  - Lethargy [Recovered/Resolved]
  - Heart rate decreased [Recovered/Resolved]
  - Respiratory rate decreased [Recovered/Resolved]
  - Blood pressure decreased [Recovered/Resolved]
  - Heart rate increased [Recovered/Resolved]
  - Respiratory rate increased [Recovered/Resolved]
  - Blood pressure increased [Recovered/Resolved]
